FAERS Safety Report 16426255 (Version 1)
Quarter: 2019Q2

REPORT INFORMATION
  Report Type: Spontaneous
  Country: US (occurrence: US)
  Receive Date: 20190613
  Receipt Date: 20190613
  Transmission Date: 20190711
  Serious: No
  Sender: FDA-Public Use
  Company Number: US-HERITAGE PHARMACEUTICALS-2019HTG00209

PATIENT
  Sex: Male

DRUGS (2)
  1. UNSPECIFIED MEDICATIONS FOR MULTIPLE SCLEROSIS [Concomitant]
  2. AMANTADINE HYDROCHLORIDE. [Suspect]
     Active Substance: AMANTADINE HYDROCHLORIDE
     Indication: MULTIPLE SCLEROSIS
     Dosage: 100 MG, 2X/DAY

REACTIONS (3)
  - Off label use [Not Recovered/Not Resolved]
  - Anal incontinence [Not Recovered/Not Resolved]
  - Visual impairment [Not Recovered/Not Resolved]
